FAERS Safety Report 25530224 (Version 1)
Quarter: 2025Q3

REPORT INFORMATION
  Report Type: Spontaneous
  Country: US (occurrence: None)
  Receive Date: 20250708
  Receipt Date: 20250708
  Transmission Date: 20251020
  Serious: Yes (Hospitalization)
  Sender: FDA-CTU
  Company Number: None

PATIENT
  Sex: Male

DRUGS (5)
  1. OPSUMIT [Suspect]
     Active Substance: MACITENTAN
     Indication: Pulmonary arterial hypertension
     Dosage: 10 MG DAILY ORAL
     Route: 048
     Dates: start: 20231121
  2. UPTRAVI [Suspect]
     Active Substance: SELEXIPAG
  3. WINREVAIR [Concomitant]
     Active Substance: SOTATERCEPT-CSRK
  4. OPSUMIT [Concomitant]
     Active Substance: MACITENTAN
  5. TADALAFIL [Concomitant]
     Active Substance: TADALAFIL

REACTIONS (1)
  - Hospitalisation [None]
